FAERS Safety Report 8357116-7 (Version None)
Quarter: 2012Q2

REPORT INFORMATION
  Report Type: 
  Country: None (occurrence: None)
  Receive Date: 20120514
  Receipt Date: 20120502
  Transmission Date: 20120825
  Serious: Yes (Hospitalization, Other)
  Sender: FDA-Public Use
  Company Number: US-BRISTOL-MYERS SQUIBB COMPANY-16587156

PATIENT
  Age: 53 Year
  Sex: Male

DRUGS (8)
  1. ARIPIPRAZOLE [Suspect]
     Indication: SCHIZOPHRENIA
     Route: 030
     Dates: start: 20120221, end: 20120329
  2. RESTORIL [Concomitant]
     Dates: start: 20120222
  3. KLONOPIN [Concomitant]
     Dates: start: 20120316
  4. BENZTROPINE MESYLATE [Concomitant]
     Dates: start: 20110728
  5. LURASIDONE HYDROCHLORIDE [Concomitant]
     Dates: start: 20111214, end: 20120221
  6. GABAPENTIN [Concomitant]
     Dates: start: 20120307
  7. CLONAZEPAM [Concomitant]
     Dates: start: 20110728
  8. METFORMIN HCL [Concomitant]
     Dates: start: 20120307

REACTIONS (2)
  - RHABDOMYOLYSIS [None]
  - SCHIZOPHRENIA [None]
